FAERS Safety Report 12753294 (Version 1)
Quarter: 2016Q3

REPORT INFORMATION
  Report Type: Spontaneous
  Country: US (occurrence: US)
  Receive Date: 20160916
  Receipt Date: 20160916
  Transmission Date: 20161109
  Serious: No
  Sender: FDA-Public Use
  Company Number: ALCN2016US006379

PATIENT
  Age: 60 Year
  Sex: Female

DRUGS (2)
  1. COMBIGAN [Suspect]
     Active Substance: BRIMONIDINE TARTRATE\TIMOLOL MALEATE
     Indication: GLAUCOMA
     Dosage: 1 GTT, BID
     Route: 047
  2. TRAVATAN Z [Suspect]
     Active Substance: TRAVOPROST
     Indication: GLAUCOMA
     Route: 047

REACTIONS (6)
  - Ocular hyperaemia [Unknown]
  - Contusion [Recovered/Resolved]
  - Erythema [Recovered/Resolved]
  - Migraine [Unknown]
  - Abnormal sensation in eye [Unknown]
  - Eye pain [Unknown]
